FAERS Safety Report 10281970 (Version 2)
Quarter: 2014Q3

REPORT INFORMATION
  Report Type: Report from Study
  Country: MX (occurrence: MX)
  Receive Date: 20140707
  Receipt Date: 20140721
  Transmission Date: 20150326
  Serious: Yes (Other)
  Sender: FDA-Public Use
  Company Number: PHHY2014MX083399

PATIENT
  Age: 69 Year
  Sex: Female

DRUGS (1)
  1. CO-DIOVAN [Suspect]
     Active Substance: HYDROCHLOROTHIAZIDE\VALSARTAN
     Indication: HYPERTENSION
     Dosage: 1 TABLET (160/12.5 MG), DAILY
     Route: 048

REACTIONS (14)
  - Muscle rigidity [Recovered/Resolved]
  - Gait disturbance [Not Recovered/Not Resolved]
  - Sensation of foreign body [Recovered/Resolved]
  - Malaise [Unknown]
  - Neck pain [Recovered/Resolved]
  - Pain [Recovered/Resolved]
  - Cardiac disorder [Recovering/Resolving]
  - Grip strength decreased [Recovered/Resolved]
  - Fall [Recovered/Resolved]
  - Arthralgia [Not Recovered/Not Resolved]
  - Femur fracture [Recovered/Resolved]
  - Patella fracture [Recovered/Resolved]
  - Muscle tightness [Recovered/Resolved]
  - Dizziness [Recovered/Resolved]

NARRATIVE: CASE EVENT DATE: 201203
